FAERS Safety Report 8967246 (Version 2)
Quarter: 2014Q4

REPORT INFORMATION
  Report Type: Spontaneous
  Country: US (occurrence: US)
  Receive Date: 20121214
  Receipt Date: 20141224
  Transmission Date: 20150529
  Serious: No
  Sender: FDA-Public Use
  Company Number: US-GLAXOSMITHKLINE-A0969318A

PATIENT

DRUGS (7)
  1. LEVOTHYROXINE [Concomitant]
     Active Substance: LEVOTHYROXINE
  2. VENTOLIN [Concomitant]
     Active Substance: ALBUTEROL SULFATE
  3. SPIRIVA [Suspect]
     Active Substance: TIOTROPIUM BROMIDE MONOHYDRATE
     Route: 055
     Dates: start: 20120305
  4. CITALOPRAM [Concomitant]
     Active Substance: CITALOPRAM HYDROBROMIDE
  5. DICYCLOMINE [Concomitant]
     Active Substance: DICYCLOMINE HYDROCHLORIDE
  6. FLUTICASONE PROPIONATE NASAL SPRAY [Suspect]
     Active Substance: FLUTICASONE PROPIONATE
     Indication: MULTIPLE ALLERGIES
     Route: 045
     Dates: start: 20120305
  7. FLONASE [Suspect]
     Active Substance: FLUTICASONE PROPIONATE
     Indication: PRODUCT USED FOR UNKNOWN INDICATION
     Dosage: UNKNOWN STRENGTH AND DOSING
     Route: 065

REACTIONS (4)
  - Burning sensation [Unknown]
  - Drug ineffective [Unknown]
  - Dysgeusia [Unknown]
  - Rhinorrhoea [Unknown]
